FAERS Safety Report 8418531-6 (Version None)
Quarter: 2012Q2

REPORT INFORMATION
  Report Type: 
  Country: None (occurrence: None)
  Receive Date: 20120530
  Receipt Date: 20120523
  Transmission Date: 20120825
  Serious: Yes (Hospitalization)
  Sender: FDA-Public Use
  Company Number: 2012SP000191

PATIENT
  Age: 21 Year
  Sex: Female
  Weight: 83.9154 kg

DRUGS (1)
  1. NUVARING [Suspect]
     Indication: CONTRACEPTION
     Dates: start: 20071201, end: 20090128

REACTIONS (23)
  - SCAR [None]
  - ANXIETY [None]
  - ABDOMINAL PAIN LOWER [None]
  - POSTPARTUM DEPRESSION [None]
  - NIGHTMARE [None]
  - OVARIAN CYST [None]
  - MATERNAL EXPOSURE BEFORE PREGNANCY [None]
  - CERVICITIS [None]
  - CARDIAC MURMUR [None]
  - ARTHRALGIA [None]
  - DEPRESSION [None]
  - PREGNANCY [None]
  - BRONCHITIS [None]
  - CERVICAL DYSPLASIA [None]
  - HEADACHE [None]
  - MUSCULOSKELETAL DISCOMFORT [None]
  - SUICIDAL IDEATION [None]
  - FALL [None]
  - PULMONARY EMBOLISM [None]
  - UPPER RESPIRATORY TRACT INFECTION [None]
  - PULMONARY VALVE STENOSIS [None]
  - CONTUSION [None]
  - MUSCULAR WEAKNESS [None]
